FAERS Safety Report 5472134-4 (Version None)
Quarter: 2007Q3

REPORT INFORMATION
  Report Type: 
  Country: None (occurrence: None)
  Receive Date: 20070928
  Receipt Date: 20070918
  Transmission Date: 20080115
  Serious: Yes (Hospitalization)
  Sender: FDA-Public Use
  Company Number: US-MERCK-0709USA03335

PATIENT
  Age: 25 Year
  Sex: Female

DRUGS (16)
  1. DECADRON [Suspect]
     Indication: PLATELET COUNT DECREASED
     Route: 042
  2. LEPIRUDIN [Concomitant]
     Route: 065
  3. BETAMETHASONE [Concomitant]
     Route: 065
  4. LABETALOL HYDROCHLORIDE [Concomitant]
     Route: 065
  5. WARFARIN [Concomitant]
     Route: 065
  6. FOSPHENYTOIN SODIUM [Concomitant]
     Route: 042
  7. CEFEPIME [Concomitant]
     Route: 042
  8. FLAGYL [Concomitant]
     Route: 065
  9. VANCOMYCIN [Concomitant]
     Route: 065
  10. METOPROLOL [Concomitant]
     Route: 042
  11. NAFCILLIN SODIUM [Concomitant]
     Route: 042
  12. ZOSYN [Concomitant]
     Route: 042
  13. VALACYCLOVIR HYDROCHLORIDE [Concomitant]
     Route: 065
  14. PREDNISONE [Concomitant]
     Route: 048
  15. LISINOPRIL [Concomitant]
     Route: 065
  16. TOPROL-XL [Concomitant]
     Route: 065

REACTIONS (2)
  - DRUG EXPOSURE DURING PREGNANCY [None]
  - DRUG INEFFECTIVE [None]
